FAERS Safety Report 5042335-8 (Version None)
Quarter: 2006Q2

REPORT INFORMATION
  Report Type: 
  Country: None (occurrence: None)
  Receive Date: 20060601
  Receipt Date: 20060331
  Transmission Date: 20061013
  Serious: No
  Sender: FDA-Public Use
  Company Number: 2006PV011272

PATIENT
  Age: 62 Year
  Sex: Male
  Weight: 108.4097 kg

DRUGS (9)
  1. BYETTA [Suspect]
     Indication: DIABETES MELLITUS NON-INSULIN-DEPENDENT
     Dosage: 5 MCG;BID;SC
     Route: 058
     Dates: start: 20060202, end: 20060222
  2. METFORMIN [Concomitant]
  3. GLYBURIDE [Concomitant]
  4. ATENOLOL [Concomitant]
  5. BENAZAPRIL/HCTZ [Concomitant]
  6. FEXOFENADINE [Concomitant]
  7. LIPITOR [Concomitant]
  8. LEVOXYL [Concomitant]
  9. RANITIDINE [Concomitant]

REACTIONS (3)
  - DIZZINESS [None]
  - WEIGHT DECREASED [None]
  - WEIGHT INCREASED [None]
